FAERS Safety Report 5259548-2 (Version None)
Quarter: 2007Q1

REPORT INFORMATION
  Report Type: 
  Country: None (occurrence: None)
  Receive Date: 20070306
  Receipt Date: 20070226
  Transmission Date: 20070707
  Serious: Yes (Other)
  Sender: FDA-Public Use
  Company Number: S07-USA-00895-01

PATIENT
  Sex: 0

DRUGS (2)
  1. LEXAPRO [Suspect]
  2. LAMICTAL [Concomitant]

REACTIONS (1)
  - RETINAL HAEMORRHAGE [None]
